FAERS Safety Report 11349504 (Version 1)
Quarter: 2015Q3

REPORT INFORMATION
  Report Type: Other
  Country: GB (occurrence: GB)
  Receive Date: 20150807
  Receipt Date: 20150807
  Transmission Date: 20151125
  Serious: Yes (Hospitalization)
  Sender: FDA-Public Use
  Company Number: GB-TARO PHARMACEUTICALS USA.,INC-2015SUN01758

PATIENT

DRUGS (2)
  1. WARFARIN [Suspect]
     Active Substance: WARFARIN
     Dosage: 9.5 MG, QD
     Route: 048
     Dates: end: 20150219
  2. WARFARIN [Suspect]
     Active Substance: WARFARIN
     Indication: THROMBOSIS
     Dosage: 10 MG, QD, 6 DAY/WK
     Route: 048
     Dates: start: 1978, end: 20150219

REACTIONS (4)
  - Intracardiac thrombus [None]
  - Cerebral haemorrhage [Unknown]
  - Ischaemic stroke [None]
  - Mobility decreased [Unknown]

NARRATIVE: CASE EVENT DATE: 20150220
